FAERS Safety Report 12643645 (Version 8)
Quarter: 2017Q3

REPORT INFORMATION
  Report Type: Spontaneous
  Country: US (occurrence: US)
  Receive Date: 20160811
  Receipt Date: 20170918
  Transmission Date: 20171127
  Serious: Yes (Congenital Anomaly, Other)
  Sender: FDA-Public Use
  Company Number: PHHY2015US127402

PATIENT
  Sex: Female

DRUGS (2)
  1. ZOFRAN [Suspect]
     Active Substance: ONDANSETRON HYDROCHLORIDE
     Indication: FOETAL EXPOSURE DURING PREGNANCY
     Dosage: MOTHER^S DOSE: 8 MG, UNK
     Route: 064
  2. ZOFRAN ODT [Suspect]
     Active Substance: ONDANSETRON HYDROCHLORIDE
     Indication: FOETAL EXPOSURE DURING PREGNANCY
     Route: 064

REACTIONS (29)
  - Cleft lip [Unknown]
  - Oropharyngeal pain [Unknown]
  - Craniofacial deformity [Unknown]
  - Urinary tract infection [Unknown]
  - Language disorder [Unknown]
  - Diarrhoea neonatal [Unknown]
  - Lymphadenopathy [Unknown]
  - Nasal congestion [Unknown]
  - Pharyngitis streptococcal [Unknown]
  - Swelling face [Unknown]
  - Viral infection [Unknown]
  - Skin papilloma [Unknown]
  - Ear infection [Unknown]
  - Pyrexia [Unknown]
  - Speech disorder [Unknown]
  - Contusion [Unknown]
  - Hypertrophic scar [Unknown]
  - Cough [Unknown]
  - Otitis media chronic [Unknown]
  - Upper respiratory tract infection [Unknown]
  - Dysuria [Unknown]
  - Dysphagia [Unknown]
  - Headache [Unknown]
  - Cleft palate [Unknown]
  - Foetal exposure during pregnancy [Unknown]
  - Otitis media acute [Unknown]
  - Ankyloglossia congenital [Unknown]
  - Eustachian tube dysfunction [Unknown]
  - Injury [Unknown]
